FAERS Safety Report 9226942 (Version 1)
Quarter: 2013Q1

REPORT INFORMATION
  Report Type: Spontaneous
  Country: US (occurrence: None)
  Receive Date: 20120912
  Receipt Date: 20120912
  Transmission Date: 20140127
  Serious: No
  Sender: FDA-Public Use
  Company Number: 2012SP028345

PATIENT
  Sex: Male

DRUGS (3)
  1. VICTRELIS [Suspect]
     Indication: HEPATITIS C
     Dosage: ; PO
     Route: 048
     Dates: start: 201202, end: 20120524
  2. PEGASYS [Suspect]
     Dosage: 90 MCG;
  3. RIBAVIRIN [Suspect]
     Dosage: 600 MG;

REACTIONS (1)
  - Blood creatinine abnormal [None]
